FAERS Safety Report 5391560-5 (Version None)
Quarter: 2007Q3

REPORT INFORMATION
  Report Type: 
  Country: None (occurrence: None)
  Receive Date: 20070719
  Receipt Date: 20070709
  Transmission Date: 20080115
  Serious: Yes (Other)
  Sender: FDA-Public Use
  Company Number: US-PFIZER INC-2007022107

PATIENT
  Sex: Male
  Weight: 122.9 kg

DRUGS (13)
  1. CHANTIX [Suspect]
     Indication: CHRONIC OBSTRUCTIVE PULMONARY DISEASE
     Route: 048
  2. CHANTIX [Interacting]
     Indication: NICOTINE DEPENDENCE
  3. CHANTIX [Interacting]
     Indication: TOBACCO ABUSE
  4. DRUG, UNSPECIFIED [Interacting]
  5. REYATAZ [Concomitant]
  6. RITONAVIR [Concomitant]
  7. ZIAGEN [Concomitant]
  8. ZERIT [Concomitant]
  9. BACTRIM DS [Concomitant]
  10. HYDROCHLOROTHIAZIDE [Concomitant]
  11. ALBUTEROL [Concomitant]
  12. ZOLOFT [Concomitant]
  13. ADVAIR DISKUS 100/50 [Concomitant]

REACTIONS (9)
  - DEHYDRATION [None]
  - DIARRHOEA [None]
  - DRUG INTERACTION [None]
  - FATIGUE [None]
  - GROIN ABSCESS [None]
  - NIGHT BLINDNESS [None]
  - PHARYNGITIS [None]
  - VIRAL INFECTION [None]
  - VISION BLURRED [None]
